FAERS Safety Report 7606374-2 (Version None)
Quarter: 2011Q3

REPORT INFORMATION
  Report Type: 
  Country: None (occurrence: None)
  Receive Date: 20110705
  Receipt Date: 20110621
  Transmission Date: 20111222
  Serious: Yes (Other)
  Sender: FDA-Public Use
  Company Number: FK201101274

PATIENT
  Age: 17 Year
  Sex: Female

DRUGS (5)
  1. VINCRISTINE [Suspect]
  2. CYCLOPHOSPHAMIDE [Suspect]
     Indication: CHORIOCARCINOMA
  3. DACTINOMYCIN [Suspect]
     Indication: CHORIOCARCINOMA
  4. ETOPOSIDE [Suspect]
     Indication: CHORIOCARCINOMA
  5. METHOTREXATE [Suspect]
     Indication: CHORIOCARCINOMA

REACTIONS (13)
  - TUMOUR LYSIS SYNDROME [None]
  - VOMITING [None]
  - OESOPHAGITIS [None]
  - BLOOD PHOSPHORUS INCREASED [None]
  - BLOOD URIC ACID INCREASED [None]
  - DEHYDRATION [None]
  - NAUSEA [None]
  - RENAL FAILURE ACUTE [None]
  - BLOOD POTASSIUM INCREASED [None]
  - DEEP VEIN THROMBOSIS [None]
  - CARDIAC FAILURE CONGESTIVE [None]
  - PULMONARY OEDEMA [None]
  - FUNGAEMIA [None]
